FAERS Safety Report 9395921 (Version 1)
Quarter: 2013Q3

REPORT INFORMATION
  Report Type: Spontaneous
  Country: NL (occurrence: None)
  Receive Date: 20130708
  Receipt Date: 20130708
  Transmission Date: 20140515
  Serious: Yes (Other)
  Sender: FDA-Public Use
  Company Number: AUR-APL-2013-05734

PATIENT
  Sex: Female

DRUGS (3)
  1. CLARITHROMYCIN [Suspect]
     Indication: BACTERIAL INFECTION
     Dosage: 1000 MG (500 MG, 2 IN 1 D)
  2. ETHINYLESTRADIOL W/LEVONORGESTREL (EUGYNON /00022701/) [Concomitant]
  3. FLUTICASONE (FLUTICASONE) [Concomitant]

REACTIONS (1)
  - Angioedema [None]
